FAERS Safety Report 7752900-2 (Version None)
Quarter: 2011Q3

REPORT INFORMATION
  Report Type: 
  Country: None (occurrence: None)
  Receive Date: 20110915
  Receipt Date: 20110907
  Transmission Date: 20111222
  Serious: Yes (Other)
  Sender: FDA-Public Use
  Company Number: CZ-JNJFOC-20110603762

PATIENT
  Sex: Male
  Weight: 84 kg

DRUGS (3)
  1. ACIDUM FOLICUM [Concomitant]
     Route: 065
     Dates: start: 20061130, end: 20110606
  2. REMICADE [Suspect]
     Indication: ANKYLOSING SPONDYLITIS
     Route: 042
     Dates: start: 20091021, end: 20110415
  3. METHOTREXATE [Concomitant]
     Route: 065

REACTIONS (1)
  - HODGKIN'S DISEASE [None]
